FAERS Safety Report 6440515-8 (Version None)
Quarter: 2009Q4

REPORT INFORMATION
  Report Type: 
  Country: None (occurrence: None)
  Receive Date: 20091113
  Receipt Date: 20091105
  Transmission Date: 20100525
  Serious: Yes (Hospitalization, Other)
  Sender: FDA-Public Use
  Company Number: JP-ABBOTT-09P-087-0607091-00

PATIENT
  Sex: Female
  Weight: 73.4 kg

DRUGS (1)
  1. HUMIRA [Suspect]
     Indication: RHEUMATOID ARTHRITIS
     Route: 058
     Dates: start: 20090709, end: 20091022

REACTIONS (4)
  - ASCITES [None]
  - CARCINOEMBRYONIC ANTIGEN INCREASED [None]
  - COMPUTERISED TOMOGRAM ABNORMAL [None]
  - PYREXIA [None]
